FAERS Safety Report 21204163 (Version 2)
Quarter: 2022Q3

REPORT INFORMATION
  Report Type: Spontaneous
  Country: US (occurrence: US)
  Receive Date: 20220812
  Receipt Date: 20220915
  Transmission Date: 20221027
  Serious: No
  Sender: FDA-Public Use
  Company Number: US-GLAXOSMITHKLINE-US2022AMR117410

PATIENT
  Sex: Female

DRUGS (1)
  1. ZEJULA [Suspect]
     Active Substance: NIRAPARIB
     Indication: Hyperlipidaemia
     Dosage: 300 MG, QD

REACTIONS (7)
  - Nausea [Unknown]
  - Laboratory test abnormal [Unknown]
  - Fatigue [Unknown]
  - Influenza [Recovered/Resolved]
  - Illness [Unknown]
  - Off label use [Unknown]
  - Product dose omission issue [Unknown]
